FAERS Safety Report 15984615 (Version 1)
Quarter: 2019Q1

REPORT INFORMATION
  Report Type: Spontaneous
  Country: US (occurrence: US)
  Receive Date: 20190219
  Receipt Date: 20190219
  Transmission Date: 20190418
  Serious: No
  Sender: FDA-Public Use
  Company Number: None

PATIENT
  Age: 25 Year
  Sex: Female

DRUGS (3)
  1. OCREVUS [Suspect]
     Active Substance: OCRELIZUMAB
     Indication: MULTIPLE SCLEROSIS
  2. GILENYA [Concomitant]
     Active Substance: FINGOLIMOD HYDROCHLORIDE
     Dates: start: 20180225, end: 20180411
  3. IMMUNOTHERAPY ALLERGY SHOTS [Concomitant]
     Dates: start: 20190201

REACTIONS (2)
  - Blepharospasm [None]
  - Muscle spasms [None]

NARRATIVE: CASE EVENT DATE: 20180601
